FAERS Safety Report 7812984-X (Version None)
Quarter: 2011Q4

REPORT INFORMATION
  Report Type: 
  Country: None (occurrence: None)
  Receive Date: 20111013
  Receipt Date: 20111003
  Transmission Date: 20120403
  Serious: Yes (Hospitalization, Other)
  Sender: FDA-Public Use
  Company Number: US-ELI_LILLY_AND_COMPANY-US201109000124

PATIENT
  Sex: Male
  Weight: 85 kg

DRUGS (13)
  1. METOLAZONE [Concomitant]
     Dosage: 5 MG, 3/W
  2. HYDROCODONE BITARTRATE AND ACETAMINOPHEN [Concomitant]
     Dosage: 5 MG, PRN
  3. POTASSIUM CHLORIDE [Concomitant]
     Dosage: 40 MEQ, BID
  4. WARFARIN SODIUM [Concomitant]
     Dosage: 7.5 MG, QD
     Route: 048
  5. ZOLPIDEM [Concomitant]
     Dosage: 5 MG, EACH EVENING
     Route: 048
  6. DIGOXIN [Concomitant]
     Dosage: 0.125 MG, QD
     Route: 048
  7. ADCIRCA [Suspect]
     Indication: PULMONARY ARTERIAL HYPERTENSION
     Dosage: 40 MG, QD
     Route: 048
     Dates: start: 20110810
  8. WARFARIN SODIUM [Concomitant]
     Dosage: 7.5 MG, QOD
  9. LETAIRIS [Concomitant]
     Dosage: 5 MG, QD
  10. TORSEMIDE [Concomitant]
     Dosage: 40 MG, EACH MORNING
     Route: 048
  11. TRAMADOL HCL [Concomitant]
     Dosage: 100 MG, QD
  12. COLCHICINE [Concomitant]
     Dosage: 0.6 MG, BID
     Route: 048
  13. SPIRONOLACTONE [Concomitant]
     Dosage: 25 MG, QD
     Route: 048

REACTIONS (3)
  - CARDIAC FAILURE CONGESTIVE [None]
  - RENAL FAILURE ACUTE [None]
  - PULMONARY HYPERTENSION [None]
